FAERS Safety Report 10224533 (Version 1)
Quarter: 2014Q1

REPORT INFORMATION
  Report Type: Spontaneous
  Country: US (occurrence: None)
  Receive Date: 20140306
  Receipt Date: 20140306
  Transmission Date: 20141002
  Serious: Yes (Other)
  Sender: FDA-Public Use
  Company Number: 163-21880-13093661

PATIENT
  Age: 49 Year
  Sex: Female

DRUGS (1)
  1. REVLIMID ( LENALIDOMIDE) (10 MILLIGRAM, CAPSULES) [Suspect]
     Indication: MYELODYSPLASTIC SYNDROME
     Dosage: 10 MG, 21 IN 28 D, PO
     Dates: start: 20130725

REACTIONS (1)
  - Thrombosis [None]
